FAERS Safety Report 22142974 (Version 5)
Quarter: 2025Q3

REPORT INFORMATION
  Report Type: Spontaneous
  Country: US (occurrence: US)
  Receive Date: 20230327
  Receipt Date: 20250702
  Transmission Date: 20251020
  Serious: No
  Sender: AMGEN
  Company Number: US-AMGEN-USASP2023051959

PATIENT
  Age: 61 Year
  Sex: Male

DRUGS (7)
  1. OTEZLA [Suspect]
     Active Substance: APREMILAST
     Indication: Psoriasis
     Dosage: 30 MILLIGRAM, BID
     Route: 048
     Dates: start: 20221110
  2. OTEZLA [Suspect]
     Active Substance: APREMILAST
     Dosage: 30 MILLIGRAM, BID
     Route: 048
     Dates: start: 202303
  3. GLUCOSAMINE [Concomitant]
     Active Substance: GLUCOSAMINE
  4. IBUPROFEN [Concomitant]
     Active Substance: IBUPROFEN
  5. VITAMINS [Concomitant]
     Active Substance: VITAMINS
     Dosage: UNK UNK, QD
  6. OMEGA 3 [Concomitant]
     Active Substance: CAPSAICIN
  7. VITAMIN D [Concomitant]
     Active Substance: VITAMIN D NOS

REACTIONS (6)
  - Diarrhoea [Not Recovered/Not Resolved]
  - Abdominal pain upper [Not Recovered/Not Resolved]
  - Infection [Unknown]
  - Product dose omission issue [Unknown]
  - Unevaluable event [Not Recovered/Not Resolved]
  - Therapy non-responder [Unknown]
